FAERS Safety Report 5302260-1 (Version None)
Quarter: 2007Q2

REPORT INFORMATION
  Report Type: 
  Country: None (occurrence: None)
  Receive Date: 20070419
  Receipt Date: 20061019
  Transmission Date: 20071010
  Serious: No
  Sender: FDA-Public Use
  Company Number: US-GLAXOSMITHKLINE-A0624214A

PATIENT
  Sex: Male

DRUGS (1)
  1. ESKALITH CR [Suspect]
     Dosage: 450MG PER DAY
     Route: 048

REACTIONS (2)
  - MOOD ALTERED [None]
  - TREMOR [None]
